FAERS Safety Report 7177605-0 (Version None)
Quarter: 2010Q4

REPORT INFORMATION
  Report Type: 
  Country: None (occurrence: None)
  Receive Date: 20101220
  Receipt Date: 20101119
  Transmission Date: 20110411
  Serious: Yes (Other)
  Sender: FDA-Public Use
  Company Number: US-PFIZER INC-US-WYE-H08315809

PATIENT
  Sex: Female

DRUGS (5)
  1. PROVERA [Suspect]
  2. PREMPRO [Suspect]
  3. PREMARIN [Suspect]
  4. ESTRATEST [Suspect]
  5. MEDROXYPROGESTERONE ACETATE [Suspect]

REACTIONS (1)
  - BREAST CANCER [None]
